FAERS Safety Report 18036822 (Version 1)
Quarter: 2020Q3

REPORT INFORMATION
  Report Type: Spontaneous
  Country: DE (occurrence: DE)
  Receive Date: 20200717
  Receipt Date: 20200717
  Transmission Date: 20201103
  Serious: Yes (Other)
  Sender: FDA-Public Use
  Company Number: DE-TEVA-2020-DE-1803375

PATIENT
  Sex: Female

DRUGS (1)
  1. BISOPROLOL?RATIOPHARM 5 MG TABLETTEN [Suspect]
     Active Substance: BISOPROLOL
     Dosage: 12.5 MILLIGRAM DAILY; 7.5  MG IN THE MORNING AND 5 MG IN THE EVENING
     Route: 048
     Dates: start: 202006

REACTIONS (7)
  - Fatigue [Recovering/Resolving]
  - Product substitution issue [Unknown]
  - Sudden onset of sleep [Not Recovered/Not Resolved]
  - Dizziness [Not Recovered/Not Resolved]
  - Bone pain [Not Recovered/Not Resolved]
  - Intentional product use issue [Recovering/Resolving]
  - Nausea [Not Recovered/Not Resolved]
